FAERS Safety Report 4379111-5 (Version None)
Quarter: 2004Q2

REPORT INFORMATION
  Report Type: 
  Country: None (occurrence: None)
  Receive Date: 20040610
  Receipt Date: 20040604
  Transmission Date: 20050107
  Serious: Yes (Hospitalization)
  Sender: FDA-Public Use
  Company Number: NL-JNJFOC-20040601256

PATIENT
  Age: 90 Year
  Sex: Male

DRUGS (1)
  1. RISPERDAL [Suspect]
     Indication: HALLUCINATION
     Dosage: 2 MG, 1 IN 1 DAY, ORAL
     Route: 048

REACTIONS (6)
  - DELUSION [None]
  - HALLUCINATION [None]
  - LEUKOPENIA [None]
  - MUSCLE RIGIDITY [None]
  - NEUTROPENIA [None]
  - PNEUMONIA [None]
